FAERS Safety Report 5865102-1 (Version None)
Quarter: 2008Q3

REPORT INFORMATION
  Report Type: 
  Country: None (occurrence: None)
  Receive Date: 20080829
  Receipt Date: 20080822
  Transmission Date: 20090109
  Serious: Yes (Other)
  Sender: FDA-Public Use
  Company Number: A0743980A

PATIENT
  Age: 6 Month
  Sex: Male

DRUGS (3)
  1. RANITIDINE [Suspect]
     Indication: DRUG USE FOR UNKNOWN INDICATION
     Dosage: .8MGML TWICE PER DAY
     Route: 048
     Dates: end: 20080601
  2. ZANTAC [Suspect]
     Indication: DRUG USE FOR UNKNOWN INDICATION
     Dosage: .8ML TWICE PER DAY
     Route: 048
  3. NO CONCURRENT MEDICATION [Concomitant]

REACTIONS (3)
  - CHOKING [None]
  - DRUG INEFFECTIVE [None]
  - RESPIRATORY ARREST [None]
